FAERS Safety Report 22592803 (Version 1)
Quarter: 2023Q2

REPORT INFORMATION
  Report Type: Spontaneous
  Country: EG (occurrence: EG)
  Receive Date: 20230613
  Receipt Date: 20230613
  Transmission Date: 20230721
  Serious: Yes (Hospitalization, Other)
  Sender: FDA-Public Use
  Company Number: EG-VIWITPHARMA-2023VWTLIT00013

PATIENT
  Age: 4 Year
  Sex: Female
  Weight: 18 kg

DRUGS (5)
  1. LEVETIRACETAM [Suspect]
     Active Substance: LEVETIRACETAM
     Indication: Moyamoya disease
     Dates: start: 201810
  2. LEVETIRACETAM [Suspect]
     Active Substance: LEVETIRACETAM
     Indication: Seizure
     Route: 042
     Dates: start: 201901
  3. LEVETIRACETAM [Suspect]
     Active Substance: LEVETIRACETAM
     Route: 048
     Dates: start: 201901
  4. VALPROATE SODIUM [Suspect]
     Active Substance: VALPROATE SODIUM
     Indication: Seizure
  5. ASPIRIN [Concomitant]
     Active Substance: ASPIRIN
     Indication: Moyamoya disease

REACTIONS (6)
  - Generalised tonic-clonic seizure [Recovered/Resolved]
  - Hemiplegia [Unknown]
  - Hemiparesis [Unknown]
  - Facial paralysis [Unknown]
  - Extensor plantar response [Unknown]
  - Dyskinesia [Unknown]
